FAERS Safety Report 8114504-1 (Version None)
Quarter: 2012Q1

REPORT INFORMATION
  Report Type: 
  Country: None (occurrence: None)
  Receive Date: 20120206
  Receipt Date: 20120130
  Transmission Date: 20120608
  Serious: Yes (Other)
  Sender: FDA-Public Use
  Company Number: US-SHIRE-ALL1-2012-00506

PATIENT
  Age: 17 Year
  Sex: Male

DRUGS (3)
  1. WELLBUTRIN [Concomitant]
     Indication: PRODUCT USED FOR UNKNOWN INDICATION
     Dosage: UNK, UNKNOWN
     Route: 065
  2. VYVANSE [Suspect]
     Dosage: 50 MG, UNKNOWN
     Route: 048
  3. VYVANSE [Suspect]
     Indication: PRODUCT USED FOR UNKNOWN INDICATION
     Dosage: 70 MG, UNKNOWN
     Route: 048

REACTIONS (4)
  - ANGER [None]
  - SUICIDAL IDEATION [None]
  - SUICIDAL BEHAVIOUR [None]
  - AGGRESSION [None]
